FAERS Safety Report 4955716-5 (Version None)
Quarter: 2006Q1

REPORT INFORMATION
  Report Type: 
  Country: None (occurrence: None)
  Receive Date: 20060328
  Receipt Date: 20060215
  Transmission Date: 20060701
  Serious: Yes (Other)
  Sender: FDA-Public Use
  Company Number: JP-ROCHE-437136

PATIENT
  Age: 42 Year
  Sex: Female

DRUGS (3)
  1. TAMIFLU [Suspect]
     Indication: INFLUENZA
     Route: 048
     Dates: start: 20060208, end: 20060208
  2. TAMIFLU [Suspect]
     Route: 048
     Dates: start: 20060209, end: 20060212
  3. TAMIFLU [Suspect]
     Route: 048
     Dates: start: 20060213, end: 20060213

REACTIONS (1)
  - DEPRESSION [None]
